FAERS Safety Report 19677144 (Version 3)
Quarter: 2021Q3

REPORT INFORMATION
  Report Type: Report from Study
  Country: CN (occurrence: CN)
  Receive Date: 20210810
  Receipt Date: 20210921
  Transmission Date: 20211014
  Serious: Yes (Hospitalization)
  Sender: FDA-Public Use
  Company Number: CN-JIANGSU HENGRUI MEDICINE CO., LTD.-2114818

PATIENT
  Age: 55 Year
  Sex: Female
  Weight: 45.5 kg

DRUGS (3)
  1. HLX10/PLACEBO [Suspect]
     Active Substance: SERPLULIMAB
     Route: 041
     Dates: start: 20201222, end: 20210203
  2. TEGAFUR?GIMERACIL?OTERACIL POTASSIUM [Suspect]
     Active Substance: GIMERACIL\OTERACIL\TEGAFUR
     Route: 048
     Dates: start: 20201222, end: 20210608
  3. OXALIPLATIN INJECTION USP, 5 MG/ML, PACKAGED IN 50 MG/10 ML AND 100 MG [Suspect]
     Active Substance: OXALIPLATIN
     Indication: GASTRIC CANCER
     Route: 041
     Dates: start: 20201222, end: 20210526

REACTIONS (1)
  - Drug-induced liver injury [Not Recovered/Not Resolved]

NARRATIVE: CASE EVENT DATE: 20210426
